FAERS Safety Report 14841467 (Version 2)
Quarter: 2018Q2

REPORT INFORMATION
  Report Type: Spontaneous
  Country: US (occurrence: US)
  Receive Date: 20180503
  Receipt Date: 20180530
  Transmission Date: 20180711
  Serious: Yes (Other)
  Sender: FDA-Public Use
  Company Number: US-FERRINGPH-2018FE02027

PATIENT

DRUGS (6)
  1. NEXIUM [Concomitant]
     Active Substance: ESOMEPRAZOLE MAGNESIUM
     Indication: GASTROOESOPHAGEAL REFLUX DISEASE
     Dosage: 40 MG, AS NEEDED
     Route: 048
  2. SYNTHROID [Concomitant]
     Active Substance: LEVOTHYROXINE SODIUM
     Indication: HYPOTHYROIDISM
     Dosage: 25 ?G, UNK
     Route: 065
  3. ZANTAC [Concomitant]
     Active Substance: RANITIDINE HYDROCHLORIDE
     Indication: GASTROOESOPHAGEAL REFLUX DISEASE
     Dosage: 150 MG, AS NEEDED AT BEDTIME
     Route: 048
     Dates: end: 20180403
  4. PROLIA [Concomitant]
     Active Substance: DENOSUMAB
     Indication: PRODUCT USED FOR UNKNOWN INDICATION
     Route: 065
  5. MINIVELLE [Concomitant]
     Active Substance: ESTRADIOL
     Indication: OESTROGEN REPLACEMENT THERAPY
     Dosage: .037 MG, DAILY
     Route: 062
  6. CLENPIQ [Suspect]
     Active Substance: ANHYDROUS CITRIC ACID\MAGNESIUM OXIDE\SODIUM PICOSULFATE
     Indication: BOWEL PREPARATION
     Dosage: 2 BOTTLES, SPLIT DOSE METHOD
     Route: 048
     Dates: start: 20180402, end: 20180403

REACTIONS (7)
  - Tongue ulceration [Recovered/Resolved]
  - Sputum retention [Recovered/Resolved]
  - Dysphagia [Not Recovered/Not Resolved]
  - Treatment noncompliance [Recovered/Resolved]
  - Tongue discomfort [Recovered/Resolved]
  - Product use issue [Recovered/Resolved]
  - Tongue coated [Recovered/Resolved]

NARRATIVE: CASE EVENT DATE: 201804
